FAERS Safety Report 6647691-2 (Version None)
Quarter: 2010Q1

REPORT INFORMATION
  Report Type: 
  Country: None (occurrence: None)
  Receive Date: 20100323
  Receipt Date: 20100323
  Transmission Date: 20100710
  Serious: Yes (Life-Threatening)
  Sender: FDA-Public Use
  Company Number: None

PATIENT
  Sex: Male
  Weight: 65.318 kg

DRUGS (1)
  1. ZOLPIDEM [Suspect]
     Dosage: 10MG EVERYNIGHT MOUTH
     Route: 048
     Dates: start: 20090615, end: 20100213

REACTIONS (5)
  - ALCOHOL USE [None]
  - DRUG SCREEN POSITIVE [None]
  - IMPRISONMENT [None]
  - ROAD TRAFFIC ACCIDENT [None]
  - SUICIDAL IDEATION [None]
